FAERS Safety Report 5529011-X (Version None)
Quarter: 2007Q4

REPORT INFORMATION
  Report Type: 
  Country: None (occurrence: None)
  Receive Date: 20071129
  Receipt Date: 20071120
  Transmission Date: 20080405
  Serious: Yes (Other)
  Sender: FDA-Public Use
  Company Number: PHRM2007FR02659

PATIENT
  Age: 30 Year
  Sex: Male

DRUGS (2)
  1. TRILEPTAL [Suspect]
     Indication: EPILEPSY
     Dosage: 600 MG, BID
     Route: 048
     Dates: start: 20070901
  2. METHADONE [Suspect]

REACTIONS (2)
  - DRUG INTERACTION [None]
  - DRUG WITHDRAWAL SYNDROME [None]
